FAERS Safety Report 4404168-2 (Version None)
Quarter: 2004Q3

REPORT INFORMATION
  Report Type: 
  Country: None (occurrence: None)
  Receive Date: 20040719
  Receipt Date: 20040712
  Transmission Date: 20050211
  Serious: Yes (Death)
  Sender: FDA-Public Use
  Company Number: 1198910030

PATIENT
  Age: 75 Year
  Sex: Female

DRUGS (5)
  1. TRASYLOL [Suspect]
     Indication: PANCREATITIS CHRONIC
     Dosage: 5 ML, TOTAL DAILY, INTRAVENOUS
     Route: 042
     Dates: start: 19890126
  2. CEBION [Concomitant]
  3. HEPASTERIL [Concomitant]
  4. TEBONIN [Concomitant]
  5. CRATAEGUTT [Concomitant]

REACTIONS (4)
  - ANAPHYLACTIC SHOCK [None]
  - CARDIAC ARREST [None]
  - LOSS OF CONSCIOUSNESS [None]
  - SUDDEN CARDIAC DEATH [None]
